FAERS Safety Report 10996639 (Version 5)
Quarter: 2015Q3

REPORT INFORMATION
  Report Type: Report from Study
  Country: US (occurrence: US)
  Receive Date: 20150408
  Receipt Date: 20150821
  Transmission Date: 20151125
  Serious: Yes (Death, Hospitalization)
  Sender: FDA-Public Use
  Company Number: US-BIOGENIDEC-2015BI043058

PATIENT
  Age: 58 Year
  Sex: Female

DRUGS (1)
  1. AVONEX [Suspect]
     Active Substance: INTERFERON BETA-1A
     Indication: MULTIPLE SCLEROSIS
     Route: 030
     Dates: start: 19980501, end: 20150315

REACTIONS (5)
  - Cellulitis [Unknown]
  - Procedural complication [Fatal]
  - Skin graft [Unknown]
  - Intestinal ischaemia [Unknown]
  - Volvulus [Unknown]

NARRATIVE: CASE EVENT DATE: 201503
